FAERS Safety Report 6056358-3 (Version None)
Quarter: 2009Q1

REPORT INFORMATION
  Report Type: 
  Country: None (occurrence: None)
  Receive Date: 20090129
  Receipt Date: 20090120
  Transmission Date: 20090719
  Serious: Yes (Hospitalization)
  Sender: FDA-Public Use
  Company Number: FR-ASTRAZENECA-2008CG00618

PATIENT
  Age: 29859 Day
  Sex: Male

DRUGS (11)
  1. CRESTOR [Suspect]
     Indication: HYPERCHOLESTEROLAEMIA
     Route: 048
  2. PREVISCAN [Interacting]
     Route: 048
  3. DI-ANTALVIC [Interacting]
     Indication: BONE PAIN
     Route: 048
     Dates: start: 20070603
  4. DOLIPRANE [Interacting]
     Indication: BONE PAIN
     Route: 048
     Dates: start: 20070603
  5. AUGMENTIN '125' [Interacting]
     Indication: INFECTION
     Route: 048
     Dates: start: 20070602, end: 20070611
  6. TRIATEC [Concomitant]
     Indication: HYPERTENSION
     Route: 048
  7. AMLOR [Concomitant]
  8. INSULATARD [Concomitant]
  9. LEUPROLIDE ACETATE [Concomitant]
  10. DIFFU K [Concomitant]
  11. LASILIX [Concomitant]
     Route: 048

REACTIONS (2)
  - DRUG INTERACTION [None]
  - INTERNATIONAL NORMALISED RATIO INCREASED [None]
